FAERS Safety Report 14972041 (Version 1)
Quarter: 2018Q2

REPORT INFORMATION
  Report Type: Spontaneous
  Country: IT (occurrence: FR)
  Receive Date: 20180605
  Receipt Date: 20180605
  Transmission Date: 20180711
  Serious: Yes (Other)
  Sender: FDA-Public Use
  Company Number: FR-CONCORDIA PHARMACEUTICALS INC.-E2B_00008636

PATIENT
  Age: 89 Year
  Sex: Female
  Weight: 55 kg

DRUGS (13)
  1. DIGOXIN. [Suspect]
     Active Substance: DIGOXIN
     Indication: CARDIAC FAILURE
     Dosage: 0.125 MG, QD
     Route: 048
     Dates: start: 20170111, end: 20170126
  2. APIXABAN [Suspect]
     Active Substance: APIXABAN
     Indication: CEREBROVASCULAR ACCIDENT PROPHYLAXIS
     Dosage: 2.5 MG, BID
     Route: 048
     Dates: start: 20170117
  3. DIGOXIN. [Suspect]
     Active Substance: DIGOXIN
     Indication: CARDIAC FAILURE
     Route: 048
  4. DIGOXIN. [Suspect]
     Active Substance: DIGOXIN
     Dosage: 0.5 ABSENT, UNK
     Route: 042
  5. FUROSEMIDE. [Suspect]
     Active Substance: FUROSEMIDE
     Indication: TACHYARRHYTHMIA
     Route: 065
  6. FUROSEMIDE. [Suspect]
     Active Substance: FUROSEMIDE
     Indication: CARDIAC FAILURE
     Route: 065
  7. DIGOXIN. [Suspect]
     Active Substance: DIGOXIN
     Indication: TACHYARRHYTHMIA
     Route: 042
  8. AMIODARONE [Suspect]
     Active Substance: AMIODARONE
     Indication: CONDUCTION DISORDER
     Route: 065
     Dates: start: 20170117
  9. FUROSEMIDE. [Suspect]
     Active Substance: FUROSEMIDE
     Indication: CARDIAC FAILURE
     Route: 065
  10. APIXABAN [Suspect]
     Active Substance: APIXABAN
     Indication: ATRIAL FIBRILLATION
     Dosage: ; IN TOTAL
     Route: 065
  11. DIGOXIN. [Suspect]
     Active Substance: DIGOXIN
     Indication: ATRIAL FIBRILLATION
     Dosage: 0.5 ABSENT, UNK
     Route: 042
     Dates: start: 20170110
  12. DIGOXIN. [Suspect]
     Active Substance: DIGOXIN
     Route: 048
  13. AMIODARONE [Suspect]
     Active Substance: AMIODARONE
     Indication: ATRIAL FIBRILLATION
     Dosage: 100 MG, BID
     Route: 065
     Dates: start: 20000101, end: 20170111

REACTIONS (6)
  - Overdose [Recovered/Resolved]
  - Drug level increased [Unknown]
  - Cardiac failure [Unknown]
  - Tachyarrhythmia [Unknown]
  - Dyspnoea [Unknown]
  - Orthopnoea [Unknown]

NARRATIVE: CASE EVENT DATE: 20170124
